FAERS Safety Report 18023222 (Version 3)
Quarter: 2020Q3

REPORT INFORMATION
  Report Type: Spontaneous
  Country: US (occurrence: US)
  Receive Date: 20200715
  Receipt Date: 20200814
  Transmission Date: 20201103
  Serious: No
  Sender: FDA-Public Use
  Company Number: US-GW PHARMA-202007USGW02464

PATIENT

DRUGS (9)
  1. FELBAMATE. [Interacting]
     Active Substance: FELBAMATE
     Indication: PRODUCT USED FOR UNKNOWN INDICATION
     Dosage: UNK
     Route: 065
  2. LEVETIRACETAM. [Concomitant]
     Active Substance: LEVETIRACETAM
     Indication: PRODUCT USED FOR UNKNOWN INDICATION
     Dosage: 2000/ 2500
     Route: 065
     Dates: end: 20200421
  3. EPIDIOLEX [Interacting]
     Active Substance: CANNABIDIOL
     Dosage: DOSE REDUCED
     Route: 048
     Dates: start: 2020, end: 20200506
  4. MIDAZOLAM. [Concomitant]
     Active Substance: MIDAZOLAM
     Indication: PRODUCT USED FOR UNKNOWN INDICATION
     Dosage: PRN
     Route: 065
  5. EPIDIOLEX [Interacting]
     Active Substance: CANNABIDIOL
     Dosage: HIGHER DOSE
     Route: 048
     Dates: start: 2020, end: 2020
  6. RISPERIDONE. [Concomitant]
     Active Substance: RISPERIDONE
     Indication: PRODUCT USED FOR UNKNOWN INDICATION
     Dosage: UNK
     Route: 065
     Dates: end: 20200427
  7. LEVETIRACETAM. [Concomitant]
     Active Substance: LEVETIRACETAM
     Dosage: 1000/ 1000/ 2500
     Route: 065
     Dates: start: 20200422
  8. EPIDIOLEX [Suspect]
     Active Substance: CANNABIDIOL
     Indication: LENNOX-GASTAUT SYNDROME
     Dosage: 350 MILLIGRAM, BID
     Route: 048
     Dates: start: 20200308, end: 2020
  9. VIMPAT [Concomitant]
     Active Substance: LACOSAMIDE
     Indication: PRODUCT USED FOR UNKNOWN INDICATION
     Dosage: UNK
     Route: 065

REACTIONS (6)
  - Seizure [Recovered/Resolved]
  - Drug interaction [Unknown]
  - Tonic convulsion [Recovered/Resolved]
  - Drug ineffective [Recovered/Resolved]
  - Generalised tonic-clonic seizure [Recovered/Resolved]
  - Atonic seizures [Recovered/Resolved]

NARRATIVE: CASE EVENT DATE: 2020
